APPROVED DRUG PRODUCT: DEFEROXAMINE MESYLATE
Active Ingredient: DEFEROXAMINE MESYLATE
Strength: 2GM/VIAL
Dosage Form/Route: INJECTABLE;INJECTION
Application: A078086 | Product #002 | TE Code: AP
Applicant: HIKMA PHARMACEUTICALS USA INC
Approved: May 30, 2007 | RLD: No | RS: No | Type: RX